FAERS Safety Report 15580299 (Version 1)
Quarter: 2018Q4

REPORT INFORMATION
  Report Type: Spontaneous
  Country: US (occurrence: US)
  Receive Date: 20181102
  Receipt Date: 20181102
  Transmission Date: 20190205
  Serious: Yes (Hospitalization)
  Sender: FDA-Public Use
  Company Number: US-ANIPHARMA-2018-US-018542

PATIENT
  Age: 49 Year
  Sex: Female

DRUGS (3)
  1. LETROZOLE. [Suspect]
     Active Substance: LETROZOLE
     Dates: start: 20181010
  2. KISQALI [Suspect]
     Active Substance: RIBOCICLIB
     Dates: start: 20181010
  3. ANASTROZOLE. [Suspect]
     Active Substance: ANASTROZOLE
     Indication: HER-2 POSITIVE BREAST CANCER
     Dates: start: 20181010

REACTIONS (5)
  - Metastases to bone [Unknown]
  - Dehydration [Unknown]
  - Flank pain [Unknown]
  - Bone pain [Unknown]
  - Metastases to kidney [Unknown]
